FAERS Safety Report 7928364-2 (Version None)
Quarter: 2011Q4

REPORT INFORMATION
  Report Type: 
  Country: None (occurrence: None)
  Receive Date: 20111118
  Receipt Date: 20111116
  Transmission Date: 20120403
  Serious: Yes (Death)
  Sender: FDA-Public Use
  Company Number: PHHY2011GB099246

PATIENT
  Sex: Male

DRUGS (3)
  1. PIPERACILLIN AND TAZOBACTAM [Concomitant]
     Route: 065
  2. TIGECYCLINE [Concomitant]
  3. MEROPENEM [Suspect]
     Route: 065

REACTIONS (3)
  - MALAISE [None]
  - DEATH [None]
  - DRUG INEFFECTIVE [None]
